FAERS Safety Report 4565517-8 (Version None)
Quarter: 2005Q1

REPORT INFORMATION
  Report Type: 
  Country: None (occurrence: None)
  Receive Date: 20050131
  Receipt Date: 20050119
  Transmission Date: 20050727
  Serious: Yes (Hospitalization)
  Sender: FDA-Public Use
  Company Number: FR-GLAXOSMITHKLINE-B0364852A

PATIENT
  Age: 82 Year
  Sex: Male

DRUGS (5)
  1. DEROXAT [Suspect]
     Indication: ILL-DEFINED DISORDER
     Dosage: 20MG PER DAY
     Route: 048
  2. ASPEGIC 325 [Suspect]
     Indication: CAROTID ARTERY STENOSIS
     Dosage: 1UNIT PER DAY
     Route: 048
     Dates: end: 20041214
  3. GLUCOPHAGE [Concomitant]
     Dosage: 1000MG PER DAY
     Route: 048
     Dates: end: 20041215
  4. COAPROVEL [Concomitant]
     Dosage: 300MG IN THE MORNING
     Route: 048
  5. CELEBREX [Concomitant]
     Dates: start: 20001201

REACTIONS (2)
  - COLON CANCER [None]
  - RECTAL HAEMORRHAGE [None]
